FAERS Safety Report 9583233 (Version 1)
Quarter: 2013Q4

REPORT INFORMATION
  Report Type: Spontaneous
  Country: US (occurrence: US)
  Receive Date: 20131002
  Receipt Date: 20131002
  Transmission Date: 20140711
  Serious: No
  Sender: FDA-Public Use
  Company Number: US-AMGEN-USASP2013045684

PATIENT
  Age: 61 Year
  Sex: Male
  Weight: 90.7 kg

DRUGS (1)
  1. ENBREL [Suspect]
     Indication: PSORIASIS
     Dosage: 50 MG, 2 TIMES/WK, 72-96 HRS APART
     Route: 058
     Dates: start: 20130508

REACTIONS (6)
  - Back pain [Unknown]
  - Neck pain [Unknown]
  - Nausea [Unknown]
  - Insomnia [Unknown]
  - Arthralgia [Unknown]
  - Musculoskeletal stiffness [Unknown]
